FAERS Safety Report 7501269-7 (Version None)
Quarter: 2011Q2

REPORT INFORMATION
  Report Type: 
  Country: None (occurrence: None)
  Receive Date: 20110524
  Receipt Date: 20110502
  Transmission Date: 20111010
  Serious: Yes (Other)
  Sender: FDA-Public Use
  Company Number: US-UCBSA-031744

PATIENT
  Sex: Female
  Weight: 58.69 kg

DRUGS (2)
  1. CIMZIA [Suspect]
     Indication: CROHN'S DISEASE
     Dosage: EVERY OTHER WEEK 3 TIMES
     Route: 058
     Dates: start: 20110417
  2. PENTASA [Concomitant]
     Indication: CROHN'S DISEASE
     Route: 048

REACTIONS (4)
  - RASH [None]
  - BUTTERFLY RASH [None]
  - INJECTION SITE SWELLING [None]
  - ABDOMINAL DISTENSION [None]
